FAERS Safety Report 8958122 (Version 4)
Quarter: 2013Q1

REPORT INFORMATION
  Report Type: Spontaneous
  Country: ZA (occurrence: ZA)
  Receive Date: 20121211
  Receipt Date: 20130304
  Transmission Date: 20140127
  Serious: Yes (Death, Life-Threatening, Congenital Anomaly)
  Sender: FDA-Public Use
  Company Number: ZA-ASTRAZENECA-2012SE92364

PATIENT
  Age: 0 Week
  Sex: Male
  Weight: 2.4 kg

DRUGS (1)
  1. ATACAND [Suspect]
     Indication: HYPERTENSION
     Route: 064

REACTIONS (10)
  - Premature baby [Fatal]
  - Congenital cystic kidney disease [Fatal]
  - Foetal growth restriction [Fatal]
  - Oligohydramnios [Unknown]
  - Vena cava thrombosis [Unknown]
  - Peripheral artery thrombosis [Unknown]
  - Congenital anomaly [Fatal]
  - Bronchopneumonia [Fatal]
  - Renal failure [Fatal]
  - Ureteric obstruction [Unknown]
